FAERS Safety Report 25014067 (Version 1)
Quarter: 2025Q1

REPORT INFORMATION
  Report Type: Spontaneous
  Country: US (occurrence: US)
  Receive Date: 20250226
  Receipt Date: 20250226
  Transmission Date: 20250409
  Serious: No
  Sender: LUNDBECK
  Company Number: US-LUNDBECK-DKLU4011162

PATIENT
  Age: 25 Year
  Sex: Female
  Weight: 81.647 kg

DRUGS (4)
  1. VYEPTI [Suspect]
     Active Substance: EPTINEZUMAB-JJMR
     Indication: Migraine
     Dosage: 300 MILLIGRAM
     Route: 041
     Dates: start: 20240521
  2. CORGARD [Concomitant]
     Active Substance: NADOLOL
     Indication: Product used for unknown indication
     Route: 048
  3. HAILEY 1.5/30 [Concomitant]
     Active Substance: ETHINYL ESTRADIOL\NORETHINDRONE ACETATE
     Indication: Product used for unknown indication
     Route: 048
  4. SPRIX [Concomitant]
     Active Substance: KETOROLAC TROMETHAMINE
     Indication: Migraine
     Route: 045

REACTIONS (1)
  - Throat irritation [Recovered/Resolved]
